FAERS Safety Report 15208598 (Version 1)
Quarter: 2018Q3

REPORT INFORMATION
  Report Type: Report from Study
  Country: GB (occurrence: GB)
  Receive Date: 20180727
  Receipt Date: 20180727
  Transmission Date: 20181010
  Serious: Yes (Other)
  Sender: FDA-Public Use
  Company Number: GB-COVIS PHARMA B.V.-2018COV03719

PATIENT
  Sex: Female

DRUGS (1)
  1. RILUTEK [Suspect]
     Active Substance: RILUZOLE

REACTIONS (1)
  - Nephrotic syndrome [Not Recovered/Not Resolved]
